FAERS Safety Report 13278610 (Version 2)
Quarter: 2017Q2

REPORT INFORMATION
  Report Type: Spontaneous
  Country: US (occurrence: US)
  Receive Date: 20170228
  Receipt Date: 20170516
  Transmission Date: 20170830
  Serious: Yes (Hospitalization)
  Sender: FDA-Public Use
  Company Number: US-INCYTE CORPORATION-2017IN001207

PATIENT

DRUGS (2)
  1. JAKAFI [Suspect]
     Active Substance: RUXOLITINIB
     Indication: POLYCYTHAEMIA
     Dosage: 5 MG, 1 TABLET, BID ON MWF ALTERNATING QOW WITH 1 TABLET BID ON MON + FRI
     Route: 048
     Dates: start: 20161201
  2. JAKAFI [Suspect]
     Active Substance: RUXOLITINIB
     Indication: POLYCYTHAEMIA
     Dosage: UNK
     Route: 048
     Dates: start: 20141017

REACTIONS (5)
  - Drug intolerance [Unknown]
  - Urinary tract infection [Unknown]
  - Diarrhoea [Unknown]
  - Inappropriate schedule of drug administration [Unknown]
  - Nausea [Unknown]
